FAERS Safety Report 11727531 (Version 1)
Quarter: 2015Q4

REPORT INFORMATION
  Report Type: Other
  Country: FR (occurrence: FR)
  Receive Date: 20151112
  Receipt Date: 20151112
  Transmission Date: 20160304
  Serious: Yes (Hospitalization)
  Sender: FDA-Public Use
  Company Number: FR-SYMPLMED PHARMACEUTICALS-2015SYMPLMED000073

PATIENT

DRUGS (5)
  1. COVERSYL [Suspect]
     Active Substance: PERINDOPRIL
     Indication: HYPERTENSION
     Dosage: 5 MG, UNK
     Route: 048
     Dates: end: 20151022
  2. METFORMIN HYDROCHLORIDE. [Suspect]
     Active Substance: METFORMIN HYDROCHLORIDE
     Indication: TYPE 2 DIABETES MELLITUS
     Dosage: 850 MG, BID
     Route: 048
     Dates: end: 20151022
  3. JANUMET [Suspect]
     Active Substance: METFORMIN HYDROCHLORIDE\SITAGLIPTIN PHOSPHATE
     Indication: TYPE 2 DIABETES MELLITUS
     Dosage: 1 DF, BID
     Route: 048
     Dates: end: 20151022
  4. AMOXICILLIN. [Suspect]
     Active Substance: AMOXICILLIN
     Indication: TOOTH ABSCESS
     Dosage: UNK
     Route: 048
     Dates: end: 20151022
  5. NUREFLEX [Suspect]
     Active Substance: IBUPROFEN
     Indication: TOOTH ABSCESS
     Dosage: UNK
     Route: 048
     Dates: end: 20151022

REACTIONS (7)
  - Abdominal pain [Unknown]
  - Lactic acidosis [Recovering/Resolving]
  - Hyperkalaemia [Recovering/Resolving]
  - Decreased appetite [Unknown]
  - General physical health deterioration [Unknown]
  - Acute kidney injury [Recovering/Resolving]
  - Weight decreased [Unknown]

NARRATIVE: CASE EVENT DATE: 20151022
